FAERS Safety Report 10477542 (Version 1)
Quarter: 2014Q3

REPORT INFORMATION
  Report Type: Spontaneous
  Country: GB (occurrence: None)
  Receive Date: 20140923
  Receipt Date: 20140923
  Transmission Date: 20150326
  Serious: Yes (Hospitalization)
  Sender: FDA-Public Use
  Company Number: IMP_07931_2014

PATIENT
  Age: 53 Year
  Sex: Female

DRUGS (1)
  1. OMEPRAZOLE (OMEPRAZOLE) [Suspect]
     Active Substance: OMEPRAZOLE
     Indication: GASTROOESOPHAGEAL REFLUX DISEASE
     Dates: start: 2002

REACTIONS (6)
  - Condition aggravated [None]
  - Paraesthesia [None]
  - Muscle spasms [None]
  - Chronic obstructive pulmonary disease [None]
  - Hypomagnesaemia [None]
  - Hypocalcaemia [None]

NARRATIVE: CASE EVENT DATE: 200701
